FAERS Safety Report 13593721 (Version 4)
Quarter: 2019Q2

REPORT INFORMATION
  Report Type: Spontaneous
  Country: ES (occurrence: ES)
  Receive Date: 20170530
  Receipt Date: 20190619
  Transmission Date: 20190711
  Serious: Yes (Hospitalization)
  Sender: FDA-Public Use
  Company Number: ES-BIOGEN-2017BI00398746

PATIENT
  Age: 36 Year
  Sex: Female

DRUGS (1)
  1. TYSABRI [Suspect]
     Active Substance: NATALIZUMAB
     Indication: MULTIPLE SCLEROSIS
     Route: 050
     Dates: start: 20150713, end: 20170417

REACTIONS (2)
  - Immune reconstitution inflammatory syndrome [Recovered/Resolved with Sequelae]
  - Progressive multifocal leukoencephalopathy [Recovered/Resolved with Sequelae]

NARRATIVE: CASE EVENT DATE: 201702
